FAERS Safety Report 9510752 (Version 7)
Quarter: 2015Q4

REPORT INFORMATION
  Report Type: Spontaneous
  Country: CA (occurrence: CA)
  Receive Date: 20130910
  Receipt Date: 20151028
  Transmission Date: 20160305
  Serious: Yes (Other)
  Sender: FDA-Public Use
  Company Number: CA-ROCHE-GNE300196

PATIENT
  Age: 67 Year
  Sex: Male
  Weight: 140 kg

DRUGS (9)
  1. ADVAIR HFA [Concomitant]
     Active Substance: FLUTICASONE PROPIONATE\SALMETEROL XINAFOATE
  2. VENTOLINE [Concomitant]
     Active Substance: ALBUTEROL
     Dosage: 3-4 PUFFS
     Route: 065
  3. XOLAIR [Suspect]
     Active Substance: OMALIZUMAB
     Dosage: 375 MG, Q2W
     Route: 058
     Dates: start: 20100329
  4. NASONEX [Concomitant]
     Active Substance: MOMETASONE FUROATE
  5. XOLAIR [Suspect]
     Active Substance: OMALIZUMAB
     Route: 058
     Dates: start: 20130903
  6. PREDNISONE. [Concomitant]
     Active Substance: PREDNISONE
     Dosage: 40-50MG FOR 14 DAYS
     Route: 065
  7. XOLAIR [Suspect]
     Active Substance: OMALIZUMAB
     Route: 058
     Dates: start: 20141014
  8. XOLAIR [Suspect]
     Active Substance: OMALIZUMAB
     Route: 058
     Dates: start: 20150929
  9. XOLAIR [Suspect]
     Active Substance: OMALIZUMAB
     Indication: ASTHMA
     Dosage: 375 MG, Q2W
     Route: 058
     Dates: start: 20060123

REACTIONS (12)
  - Gout [Unknown]
  - Nasopharyngitis [Unknown]
  - Cough [Unknown]
  - Respiratory rate decreased [Unknown]
  - Respiratory tract congestion [Unknown]
  - Obstructive airways disorder [Unknown]
  - Blood pressure increased [Unknown]
  - Incorrect dose administered [Unknown]
  - Wheezing [Unknown]
  - Herpes zoster [Unknown]
  - Vital capacity decreased [Unknown]
  - Rales [Unknown]

NARRATIVE: CASE EVENT DATE: 20141014
